FAERS Safety Report 6329233-4 (Version None)
Quarter: 2009Q3

REPORT INFORMATION
  Report Type: 
  Country: None (occurrence: None)
  Receive Date: 20090826
  Receipt Date: 20090817
  Transmission Date: 20100115
  Serious: Yes (Other)
  Sender: FDA-Public Use
  Company Number: US-PFIZER INC-2005103596

PATIENT
  Sex: Female
  Weight: 66 kg

DRUGS (5)
  1. PROVERA [Suspect]
     Indication: HORMONE REPLACEMENT THERAPY
     Dosage: UNK
     Route: 048
     Dates: start: 19830101, end: 19970101
  2. PREMARIN [Suspect]
     Indication: HORMONE REPLACEMENT THERAPY
     Dosage: 0.625 MG, UNK
     Dates: start: 19830101, end: 19980101
  3. ESTRACE [Suspect]
     Indication: HORMONE REPLACEMENT THERAPY
     Dosage: 1 MG, UNK
     Dates: start: 19940826, end: 19950101
  4. HYGROTON [Concomitant]
     Indication: BLOOD PRESSURE
     Dosage: 50 MG, UNK
     Dates: start: 19780101
  5. LEVOXYL [Concomitant]
     Indication: THYROID DISORDER
     Dosage: 125 UG, UNK
     Dates: start: 19600101

REACTIONS (1)
  - BREAST CANCER [None]
